FAERS Safety Report 23295284 (Version 2)
Quarter: 2024Q1

REPORT INFORMATION
  Report Type: Report from Study
  Country: US (occurrence: None)
  Receive Date: 20231214
  Receipt Date: 20240131
  Transmission Date: 20240410
  Serious: Yes (Hospitalization, Other)
  Sender: FDA-Public Use
  Company Number: 2023A277362

PATIENT
  Sex: Male

DRUGS (1)
  1. FASENRA [Suspect]
     Active Substance: BENRALIZUMAB
     Route: 058

REACTIONS (6)
  - Ammonia abnormal [Unknown]
  - Atrial fibrillation [Unknown]
  - Asthma [Unknown]
  - Bronchitis [Unknown]
  - Pneumonia [Unknown]
  - Diabetes mellitus [Unknown]
